FAERS Safety Report 15095845 (Version 3)
Quarter: 2018Q3

REPORT INFORMATION
  Report Type: Spontaneous
  Country: PT (occurrence: PT)
  Receive Date: 20180702
  Receipt Date: 20180831
  Transmission Date: 20181010
  Serious: Yes (Hospitalization, Other)
  Sender: FDA-Public Use
  Company Number: PHHY2018PT055265

PATIENT
  Age: 90 Year
  Sex: Male

DRUGS (4)
  1. AMOXICILLIN+CLAVULANATE [Suspect]
     Active Substance: AMOXICILLIN\CLAVULANATE POTASSIUM
     Indication: CYSTITIS
  2. AMOXICILLIN+CLAVULANATE [Suspect]
     Active Substance: AMOXICILLIN\CLAVULANATE POTASSIUM
     Indication: RESPIRATORY TRACT INFECTION
     Dosage: 1 DF, Q12H (875+125 MG 12H / 12H, 8 DAYS)
     Route: 048
     Dates: start: 20150210
  3. CIPROFLOXACIN. [Suspect]
     Active Substance: CIPROFLOXACIN
     Indication: URINARY TRACT INFECTION
     Dosage: 500 MG, Q12H
     Route: 065
     Dates: start: 20150106
  4. AMOXICILLIN+CLAVULANATE [Suspect]
     Active Substance: AMOXICILLIN\CLAVULANATE POTASSIUM
     Indication: ANURIA

REACTIONS (7)
  - Gastroduodenitis [Recovered/Resolved]
  - Abdominal pain [Recovered/Resolved]
  - Multiple-drug resistance [Unknown]
  - Urinary tract infection pseudomonal [Recovered/Resolved]
  - Diarrhoea [Recovered/Resolved]
  - Vomiting [Recovered/Resolved]
  - Pathogen resistance [Unknown]

NARRATIVE: CASE EVENT DATE: 20150302
